FAERS Safety Report 23352252 (Version 1)
Quarter: 2023Q4

REPORT INFORMATION
  Report Type: Report from Study
  Country: US (occurrence: US)
  Receive Date: 20231229
  Receipt Date: 20231229
  Transmission Date: 20240110
  Serious: Yes (Other)
  Sender: FDA-Public Use
  Company Number: US-IGSA-BIG0027014

PATIENT
  Sex: Male
  Weight: 73 kg

DRUGS (7)
  1. PROLASTIN-C LIQUID [Suspect]
     Active Substance: .ALPHA.1-PROTEINASE INHIBITOR HUMAN
     Indication: Alpha-1 antitrypsin deficiency
     Dosage: 4380 MILLIGRAM, Q.WK.
     Route: 042
     Dates: start: 20190321
  2. ADVAIR HFA [Concomitant]
     Active Substance: FLUTICASONE PROPIONATE\SALMETEROL XINAFOATE
  3. BICALUTAMIDE [Concomitant]
     Active Substance: BICALUTAMIDE
  4. MOMETASONE FUROATE [Concomitant]
     Active Substance: MOMETASONE FUROATE
  5. LUMIGAN [Concomitant]
     Active Substance: BIMATOPROST
  6. SINGULAIR [Concomitant]
     Active Substance: MONTELUKAST SODIUM
  7. TIMOLOL MALEATE [Concomitant]
     Active Substance: TIMOLOL MALEATE

REACTIONS (4)
  - Transient ischaemic attack [Recovering/Resolving]
  - Ageusia [Recovering/Resolving]
  - Dizziness [Recovering/Resolving]
  - Feeling abnormal [Recovering/Resolving]
